FAERS Safety Report 25089200 (Version 2)
Quarter: 2025Q3

REPORT INFORMATION
  Report Type: Spontaneous
  Country: US (occurrence: US)
  Receive Date: 20250318
  Receipt Date: 20250821
  Transmission Date: 20251021
  Serious: Yes (Death, Hospitalization)
  Sender: ELI LILLY AND COMPANY
  Company Number: US-ELI_LILLY_AND_COMPANY-US202503011986

PATIENT
  Age: 67 Year
  Sex: Male
  Weight: 104.31 kg

DRUGS (39)
  1. TRULICITY [Suspect]
     Active Substance: DULAGLUTIDE
     Indication: Type 2 diabetes mellitus
     Dosage: 3 MG, WEEKLY (1/W)
     Route: 065
     Dates: start: 20190327
  2. TRULICITY [Suspect]
     Active Substance: DULAGLUTIDE
     Indication: Weight control
     Dosage: 4.5 MG, WEEKLY (1/W)
     Route: 065
     Dates: start: 20210512, end: 20220312
  3. TRULICITY [Suspect]
     Active Substance: DULAGLUTIDE
     Indication: Neuropathy peripheral
  4. CIALIS [Suspect]
     Active Substance: TADALAFIL
     Indication: Benign prostatic hyperplasia
     Route: 065
     Dates: start: 20181207, end: 20220313
  5. BYDUREON [Concomitant]
     Active Substance: EXENATIDE
     Indication: Weight control
     Dosage: 2 MG, WEEKLY (1/W)
     Dates: start: 20160101, end: 20190327
  6. BYDUREON [Concomitant]
     Active Substance: EXENATIDE
     Indication: Type 2 diabetes mellitus
  7. JARDIANCE [Concomitant]
     Active Substance: EMPAGLIFLOZIN
     Indication: Product used for unknown indication
     Dates: start: 20170830, end: 20220313
  8. METFORMIN [Concomitant]
     Active Substance: METFORMIN HYDROCHLORIDE
     Indication: Product used for unknown indication
     Dosage: UNK UNK, BID
     Route: 048
     Dates: start: 20151002, end: 20170929
  9. METFORMIN [Concomitant]
     Active Substance: METFORMIN HYDROCHLORIDE
     Dosage: UNK UNK, BID (1000 PO)
     Route: 048
     Dates: start: 20170830
  10. JANUVIA [Concomitant]
     Active Substance: SITAGLIPTIN PHOSPHATE
     Indication: Type 2 diabetes mellitus
     Dates: start: 20151223, end: 20190507
  11. AMARYL [Concomitant]
     Active Substance: GLIMEPIRIDE
     Indication: Product used for unknown indication
     Dates: start: 20151223, end: 20170929
  12. GLIPIZIDE [Concomitant]
     Active Substance: GLIPIZIDE
     Indication: Product used for unknown indication
     Dates: start: 20151223, end: 20170929
  13. STARLIX [Concomitant]
     Active Substance: NATEGLINIDE
     Indication: Product used for unknown indication
     Dates: end: 20170929
  14. LEVOTHYROXINE [Concomitant]
     Active Substance: LEVOTHYROXINE
     Indication: Hypothyroidism
     Dates: start: 20151223, end: 20220313
  15. VALACYCLOVIR [Concomitant]
     Active Substance: VALACYCLOVIR HYDROCHLORIDE
     Indication: Genital herpes simplex
     Dates: start: 20151223, end: 20220313
  16. LISINOPRIL [Concomitant]
     Active Substance: LISINOPRIL
     Indication: Hypertension
     Dates: start: 20151223
  17. LIOTHYRONINE [Concomitant]
     Active Substance: LIOTHYRONINE
     Indication: Hypothyroidism
     Dates: start: 19200901, end: 20220313
  18. CRESTOR [Concomitant]
     Active Substance: ROSUVASTATIN CALCIUM
     Indication: Hyperlipidaemia
     Dates: start: 20180606, end: 20220313
  19. OMEPRAZOLE [Concomitant]
     Active Substance: OMEPRAZOLE
     Indication: Gastrooesophageal reflux disease
     Dates: start: 20150206, end: 20220313
  20. CETIRIZINE [Concomitant]
     Active Substance: CETIRIZINE HYDROCHLORIDE
     Indication: Conjunctivitis allergic
     Dates: start: 20200310, end: 20220313
  21. CETIRIZINE [Concomitant]
     Active Substance: CETIRIZINE HYDROCHLORIDE
     Indication: Seasonal allergy
  22. TRICOR [Concomitant]
     Active Substance: FENOFIBRATE
     Indication: Type V hyperlipidaemia
     Dates: start: 20200206, end: 20220313
  23. CLOMIPHENE [CLOMIFENE CITRATE] [Concomitant]
     Indication: Secondary hypogonadism
     Dates: start: 20200206, end: 20220313
  24. VITAMIN D3 [Concomitant]
     Active Substance: CHOLECALCIFEROL
     Indication: Vitamin D deficiency
     Dates: start: 20210512, end: 20220313
  25. ATIVAN [Concomitant]
     Active Substance: LORAZEPAM
     Indication: Anxiety
     Dates: start: 20100510, end: 20180327
  26. OMEGA-3-ACID ETHYL ESTERS [Concomitant]
     Active Substance: OMEGA-3-ACID ETHYL ESTERS
     Indication: Dyslipidaemia
     Dates: start: 20151223, end: 20220313
  27. VIAGRA [Concomitant]
     Active Substance: SILDENAFIL CITRATE
     Indication: Erectile dysfunction
     Dates: start: 20160103, end: 20190124
  28. CLOTRIMAZOLE [Concomitant]
     Active Substance: CLOTRIMAZOLE
     Indication: Tinea cruris
     Dates: start: 20170830, end: 20190610
  29. ATORVASTATIN [Concomitant]
     Active Substance: ATORVASTATIN
     Indication: Hyperlipidaemia
     Dates: start: 20151223, end: 20190506
  30. LANSOPRAZOLE [Concomitant]
     Active Substance: LANSOPRAZOLE
     Indication: Gastrooesophageal reflux disease
     Dates: start: 20151223, end: 20201102
  31. CELEBREX [Concomitant]
     Active Substance: CELECOXIB
     Indication: Inflammatory pain
  32. LAMISIL [Concomitant]
     Active Substance: TERBINAFINE HYDROCHLORIDE
     Indication: Onychomycosis
     Dates: start: 20180305, end: 20220313
  33. ZETIA [Concomitant]
     Active Substance: EZETIMIBE
     Indication: Blood cholesterol
     Dates: start: 20151223, end: 20190506
  34. GLUCOPHAGE [Concomitant]
     Active Substance: METFORMIN HYDROCHLORIDE
     Indication: Type 2 diabetes mellitus
     Dates: start: 20170830, end: 20220313
  35. SYNTHROID [Concomitant]
     Active Substance: LEVOTHYROXINE SODIUM
     Indication: Hypothyroidism
     Dates: start: 20170830, end: 20220313
  36. CENTRUM SILVER [ASCORBIC ACID;BETACAROTENE;BI [Concomitant]
     Indication: Multi-vitamin deficiency
     Dates: start: 19900101, end: 20220313
  37. CLARITIN [Concomitant]
     Active Substance: LORATADINE
     Indication: Hypersensitivity
     Dates: start: 20160103, end: 20200310
  38. ASPIRIN [Concomitant]
     Active Substance: ASPIRIN
     Indication: Type 2 diabetes mellitus
     Dates: start: 20100510, end: 20200312
  39. COENZYME Q10 [Concomitant]
     Active Substance: DIETARY SUPPLEMENT\UBIDECARENONE
     Indication: Cardiovascular symptom
     Dates: start: 20160105, end: 20200312

REACTIONS (9)
  - Pancreatitis necrotising [Fatal]
  - Dyspepsia [Fatal]
  - Vomiting [Fatal]
  - Cholecystitis [Fatal]
  - Constipation [Fatal]
  - Abdominal pain upper [Fatal]
  - Diarrhoea [Fatal]
  - Cholelithiasis [Fatal]
  - Nausea [Fatal]

NARRATIVE: CASE EVENT DATE: 20190501
